FAERS Safety Report 4508998-8 (Version None)
Quarter: 2004Q4

REPORT INFORMATION
  Report Type: 
  Country: None (occurrence: None)
  Receive Date: 20041122
  Receipt Date: 20041122
  Transmission Date: 20050328
  Serious: Yes (Hospitalization)
  Sender: FDA-Public Use
  Company Number: None

PATIENT
  Age: 52 Year
  Sex: Female

DRUGS (11)
  1. LOSARTAN [Suspect]
     Indication: DIABETES MELLITUS
     Dosage: 50 MG DAILY ORAL
     Route: 048
  2. LOSARTAN [Suspect]
     Indication: HYPERTENSION
     Dosage: 50 MG DAILY ORAL
     Route: 048
  3. TACRIOLIMUS-PROGRAF [Concomitant]
  4. FOSAMAX [Concomitant]
  5. FAMOTIDINE [Concomitant]
  6. ASPIRIN [Concomitant]
  7. METOPROLO-LOPRESSOR [Concomitant]
  8. LANTUS [Concomitant]
  9. COMBIVENT [Concomitant]
  10. ALBUTEROL [Concomitant]
  11. FAMOTIDINE [Concomitant]

REACTIONS (3)
  - DYSPNOEA [None]
  - OROPHARYNGEAL SWELLING [None]
  - RETCHING [None]
